FAERS Safety Report 21186121 (Version 1)
Quarter: 2022Q3

REPORT INFORMATION
  Report Type: Spontaneous
  Country: BG (occurrence: BG)
  Receive Date: 20220808
  Receipt Date: 20220808
  Transmission Date: 20221027
  Serious: Yes (Other)
  Sender: FDA-Public Use
  Company Number: BG-ALNYLAM PHARMACEUTICALS, INC.-ALN-2022-002638

PATIENT

DRUGS (1)
  1. ONPATTRO [Suspect]
     Active Substance: PATISIRAN SODIUM
     Indication: Product used for unknown indication
     Dosage: 3 VIALS, Q3W
     Route: 065
     Dates: start: 2022

REACTIONS (2)
  - Blood creatinine increased [Unknown]
  - Glomerular filtration rate decreased [Unknown]
